FAERS Safety Report 20651303 (Version 2)
Quarter: 2022Q2

REPORT INFORMATION
  Report Type: Report from Study
  Country: CA (occurrence: CA)
  Receive Date: 20220329
  Receipt Date: 20220406
  Transmission Date: 20220721
  Serious: Yes (Hospitalization)
  Sender: FDA-Public Use
  Company Number: CA-ABBVIE-21K-028-4139831-00

PATIENT
  Age: 83 Year
  Sex: Male

DRUGS (2)
  1. LUPRON DEPOT [Suspect]
     Active Substance: LEUPROLIDE ACETATE
     Indication: Prostate cancer
     Route: 030
  2. CASODEX [Concomitant]
     Active Substance: BICALUTAMIDE
     Indication: Product used for unknown indication

REACTIONS (5)
  - COVID-19 [Unknown]
  - Cognitive disorder [Unknown]
  - Amnesia [Unknown]
  - Injection site pain [Unknown]
  - Confusional state [Unknown]

NARRATIVE: CASE EVENT DATE: 20220301
